FAERS Safety Report 4743035-1 (Version None)
Quarter: 2005Q3

REPORT INFORMATION
  Report Type: 
  Country: None (occurrence: None)
  Receive Date: 20050809
  Receipt Date: 20050728
  Transmission Date: 20060218
  Serious: Yes (Other)
  Sender: FDA-Public Use
  Company Number: 2005101740

PATIENT
  Sex: Female

DRUGS (6)
  1. CELEBREX [Suspect]
     Indication: RHEUMATOID ARTHRITIS
     Dosage: 400 MG (200 MG, 2 IN 1 D),
     Dates: end: 20050101
  2. EVISTA [Concomitant]
  3. ALL OTHER THERAPEUTIC PRODUCTS (ALL OTHER THERAPEUTIC PRODUCTS) [Concomitant]
  4. PREDNISONE [Concomitant]
  5. TEMAZEPAM [Concomitant]
  6. FOSAMAX [Concomitant]

REACTIONS (3)
  - BLINDNESS UNILATERAL [None]
  - FRACTURED SACRUM [None]
  - OCULAR VASCULAR DISORDER [None]
